FAERS Safety Report 22161193 (Version 1)
Quarter: 2023Q1

REPORT INFORMATION
  Report Type: Spontaneous
  Country: CA (occurrence: CA)
  Receive Date: 20230331
  Receipt Date: 20230331
  Transmission Date: 20230418
  Serious: Yes (Other)
  Sender: FDA-Public Use
  Company Number: CA-TEVA-2023-CA-2870750

PATIENT
  Age: 65 Year
  Sex: Male

DRUGS (3)
  1. RAMIPRIL [Suspect]
     Active Substance: RAMIPRIL
     Indication: Hypertension
     Route: 065
  2. RAMIPRIL [Suspect]
     Active Substance: RAMIPRIL
     Route: 065
  3. LORATADINE [Concomitant]
     Active Substance: LORATADINE
     Indication: Seasonal allergy
     Route: 065

REACTIONS (11)
  - Asthenia [Unknown]
  - Cough [Unknown]
  - Diabetes mellitus inadequate control [Unknown]
  - Diarrhoea [Unknown]
  - Dizziness [Unknown]
  - Fatigue [Unknown]
  - Feeling abnormal [Unknown]
  - Paraesthesia [Unknown]
  - Heart rate increased [Unknown]
  - Blood pressure increased [Unknown]
  - Product substitution issue [Unknown]
